FAERS Safety Report 6813427-5 (Version None)
Quarter: 2010Q3

REPORT INFORMATION
  Report Type: 
  Country: None (occurrence: None)
  Receive Date: 20100701
  Receipt Date: 20100629
  Transmission Date: 20110219
  Serious: Yes (Other)
  Sender: FDA-Public Use
  Company Number: FR-WYE-G06333410

PATIENT
  Sex: Female

DRUGS (3)
  1. TAZOCILLINE [Suspect]
     Dosage: UNKNOWN
     Route: 042
     Dates: start: 20100604, end: 20100608
  2. GENTAMICIN [Concomitant]
     Dosage: UNKNOWN
     Dates: start: 20100604, end: 20100606
  3. CIFLOX [Suspect]
     Dosage: UNKNOWN
     Route: 042
     Dates: start: 20100607, end: 20100608

REACTIONS (2)
  - LIP OEDEMA [None]
  - RASH [None]
